FAERS Safety Report 4990098-4 (Version None)
Quarter: 2006Q2

REPORT INFORMATION
  Report Type: 
  Country: None (occurrence: None)
  Receive Date: 20060501
  Receipt Date: 20060501
  Transmission Date: 20061013
  Serious: Yes (Disabling)
  Sender: FDA-Public Use
  Company Number: None

PATIENT
  Age: 49 Year
  Sex: Female
  Weight: 83.9154 kg

DRUGS (4)
  1. LEVAQUIN [Suspect]
     Indication: ABSCESS
     Dosage: 500 MG TABLET 1 X DAILY PO
     Route: 048
     Dates: start: 20060228, end: 20060313
  2. LEVAQUIN [Suspect]
     Indication: DIVERTICULITIS
     Dosage: 500 MG TABLET 1 X DAILY PO
     Route: 048
     Dates: start: 20060228, end: 20060313
  3. LEVAQUIN [Suspect]
     Indication: ABSCESS
     Dosage: 500 MG TABLET 1 X DAILY PO
     Route: 048
     Dates: start: 20060331, end: 20060425
  4. LEVAQUIN [Suspect]
     Indication: DIVERTICULITIS
     Dosage: 500 MG TABLET 1 X DAILY PO
     Route: 048
     Dates: start: 20060331, end: 20060425

REACTIONS (10)
  - ABSCESS [None]
  - ARTHRALGIA [None]
  - ARTHRITIS [None]
  - DIFFICULTY IN WALKING [None]
  - FATIGUE [None]
  - INSOMNIA [None]
  - JOINT SWELLING [None]
  - PAIN [None]
  - PYREXIA [None]
  - SHOULDER PAIN [None]
